FAERS Safety Report 11575990 (Version 1)
Quarter: 2015Q3

REPORT INFORMATION
  Report Type: Spontaneous
  Country: US (occurrence: None)
  Receive Date: 20150929
  Receipt Date: 20150929
  Transmission Date: 20151125
  Serious: No
  Sender: FDA-Public Use
  Company Number: None

PATIENT
  Age: 8 Year
  Sex: Male
  Weight: 30.39 kg

DRUGS (1)
  1. GUANFACINE HCL [Suspect]
     Active Substance: GUANFACINE HYDROCHLORIDE
     Route: 048

REACTIONS (4)
  - Headache [None]
  - Abdominal pain upper [None]
  - Dyskinesia [None]
  - Product substitution issue [None]

NARRATIVE: CASE EVENT DATE: 201507
